FAERS Safety Report 26211449 (Version 1)
Quarter: 2025Q4

REPORT INFORMATION
  Report Type: Spontaneous
  Country: US (occurrence: US)
  Receive Date: 20251230
  Receipt Date: 20251230
  Transmission Date: 20260117
  Serious: No
  Sender: ALMUS
  Company Number: US-ALMIRALL-US-2025-4706

PATIENT
  Age: 86 Year
  Sex: Female

DRUGS (3)
  1. KLISYRI [Suspect]
     Active Substance: TIRBANIBULIN
     Indication: Neoplasm prophylaxis
     Dates: start: 20251216
  2. AMOXICILLIN [Concomitant]
     Active Substance: AMOXICILLIN
  3. OLMESARTAN [Concomitant]
     Active Substance: OLMESARTAN

REACTIONS (3)
  - Application site swelling [Unknown]
  - Off label use [Unknown]
  - Application site irritation [Unknown]
